FAERS Safety Report 6694617-1 (Version None)
Quarter: 2010Q2

REPORT INFORMATION
  Report Type: 
  Country: None (occurrence: None)
  Receive Date: 20100423
  Receipt Date: 20100415
  Transmission Date: 20101027
  Serious: Yes (Other)
  Sender: FDA-Public Use
  Company Number: CH-SANOFI-AVENTIS-2010SA021679

PATIENT
  Sex: Female

DRUGS (4)
  1. MULTAQ [Suspect]
     Route: 048
     Dates: start: 20100313, end: 20100319
  2. VALSARTAN [Concomitant]
     Indication: HYPERTENSION
     Route: 048
     Dates: start: 20091001
  3. ISOPTIN [Concomitant]
     Indication: DRUG USE FOR UNKNOWN INDICATION
  4. ASPIRIN [Concomitant]
     Indication: DRUG USE FOR UNKNOWN INDICATION
     Route: 048

REACTIONS (2)
  - BRADYCARDIA [None]
  - NODAL RHYTHM [None]
